FAERS Safety Report 5129569-9 (Version None)
Quarter: 2006Q4

REPORT INFORMATION
  Report Type: 
  Country: None (occurrence: None)
  Receive Date: 20061012
  Receipt Date: 20061004
  Transmission Date: 20070319
  Serious: Yes (Other)
  Sender: FDA-Public Use
  Company Number: 2006120334

PATIENT
  Age: 12 Year
  Sex: Female

DRUGS (1)
  1. ZANTAC [Suspect]
     Indication: ULCER
     Dosage: 1 TABLET, ORAL
     Route: 048

REACTIONS (3)
  - DIZZINESS [None]
  - HEADACHE [None]
  - LOSS OF CONSCIOUSNESS [None]
